FAERS Safety Report 8249464-6 (Version None)
Quarter: 2012Q1

REPORT INFORMATION
  Report Type: 
  Country: None (occurrence: None)
  Receive Date: 20120316
  Receipt Date: 20100803
  Transmission Date: 20120608
  Serious: Yes (Hospitalization, Other)
  Sender: FDA-Public Use
  Company Number: PHHY2010US34966

PATIENT
  Sex: Male

DRUGS (2)
  1. TEKTURNA [Suspect]
     Indication: HYPERTENSION
     Dosage: 150 MG DAILY, ORAL
     Route: 048
  2. ASPIRIN [Concomitant]

REACTIONS (3)
  - ANGIOEDEMA [None]
  - DYSARTHRIA [None]
  - DYSPHAGIA [None]
